FAERS Safety Report 25955056 (Version 1)
Quarter: 2025Q4

REPORT INFORMATION
  Report Type: Spontaneous
  Country: US (occurrence: US)
  Receive Date: 20251024
  Receipt Date: 20251024
  Transmission Date: 20260117
  Serious: Yes (Hospitalization, Other)
  Sender: GRAVITI PHARMACEUTICALS PRIVATE LIMITED
  Company Number: US-GRAVITIPHARMA-GRA-2510-US-LIT-0422

PATIENT
  Age: 45 Year
  Sex: Female

DRUGS (3)
  1. PANTOPRAZOLE [Suspect]
     Active Substance: PANTOPRAZOLE
     Indication: Helicobacter infection
     Route: 065
  2. MOXIFLOXACIN HYDROCHLORIDE [Suspect]
     Active Substance: MOXIFLOXACIN HYDROCHLORIDE
     Indication: Helicobacter infection
     Route: 065
  3. RIFABUTIN [Suspect]
     Active Substance: RIFABUTIN
     Indication: Helicobacter infection
     Route: 065

REACTIONS (1)
  - Neutropenia [Recovered/Resolved]
